FAERS Safety Report 4641183-8 (Version None)
Quarter: 2005Q2

REPORT INFORMATION
  Report Type: 
  Country: None (occurrence: None)
  Receive Date: 20050421
  Receipt Date: 20041208
  Transmission Date: 20051028
  Serious: No
  Sender: FDA-Public Use
  Company Number: US-BRISTOL-MYERS SQUIBB COMPANY-12790531

PATIENT
  Sex: Female

DRUGS (3)
  1. RUBEX [Suspect]
     Indication: BREAST CANCER
     Route: 042
     Dates: start: 20041208, end: 20041208
  2. DECADRON [Concomitant]
     Indication: PREMEDICATION
     Route: 042
     Dates: start: 20041208, end: 20041208
  3. ALOXI [Concomitant]
     Indication: PREMEDICATION
     Route: 042
     Dates: start: 20041208, end: 20041208

REACTIONS (1)
  - VEIN DISORDER [None]
